FAERS Safety Report 25432841 (Version 1)
Quarter: 2025Q2

REPORT INFORMATION
  Report Type: Spontaneous
  Country: US (occurrence: US)
  Receive Date: 20250613
  Receipt Date: 20250613
  Transmission Date: 20250716
  Serious: No
  Sender: MERCK SHARP & DOHME LLC
  Company Number: US-009507513-2287596

PATIENT
  Age: 68 Year
  Sex: Female
  Weight: 57 kg

DRUGS (24)
  1. SOTATERCEPT [Suspect]
     Active Substance: SOTATERCEPT
     Indication: Product used for unknown indication
     Dates: end: 202504
  2. SOTATERCEPT [Suspect]
     Active Substance: SOTATERCEPT
  3. SOTATERCEPT [Suspect]
     Active Substance: SOTATERCEPT
  4. SOTATERCEPT [Suspect]
     Active Substance: SOTATERCEPT
  5. REMODULIN [Concomitant]
     Active Substance: TREPROSTINIL
     Indication: Pulmonary arterial hypertension
     Route: 058
  6. MELATONIN [Concomitant]
     Active Substance: MELATONIN
  7. LETAIRIS [Concomitant]
     Active Substance: AMBRISENTAN
  8. SINGULAIR [Concomitant]
     Active Substance: MONTELUKAST SODIUM
  9. BREZTRI [Concomitant]
     Active Substance: BUDESONIDE\FORMOTEROL\GLYCOPYRROLATE
  10. ALENDRONATE SODIUM [Concomitant]
     Active Substance: ALENDRONATE SODIUM
  11. VITAMIN D2 [Concomitant]
     Active Substance: ERGOCALCIFEROL
  12. METOLAZONE [Concomitant]
     Active Substance: METOLAZONE
  13. NEXIUM [Concomitant]
     Active Substance: ESOMEPRAZOLE MAGNESIUM
  14. TADALAFIL [Concomitant]
     Active Substance: TADALAFIL
  15. FLUTICASONE PROPIONATE [Concomitant]
     Active Substance: FLUTICASONE PROPIONATE
  16. TRAMADOL HCL [Concomitant]
     Active Substance: TRAMADOL HYDROCHLORIDE
  17. ASPIRIN [Concomitant]
     Active Substance: ASPIRIN
  18. OXYGEN [Concomitant]
     Active Substance: OXYGEN
  19. VENTOLIN HFA [Concomitant]
     Active Substance: ALBUTEROL SULFATE
  20. SPIRONOLACTONE [Concomitant]
     Active Substance: SPIRONOLACTONE
  21. FUROSEMIDE [Concomitant]
     Active Substance: FUROSEMIDE
  22. DIGOXIN [Concomitant]
     Active Substance: DIGOXIN
  23. ONDANSETRON HYDROCHLORIDE [Concomitant]
     Active Substance: ONDANSETRON HYDROCHLORIDE
  24. TYLENOL [Concomitant]
     Active Substance: ACETAMINOPHEN

REACTIONS (1)
  - Laboratory test abnormal [Unknown]

NARRATIVE: CASE EVENT DATE: 20250401
